FAERS Safety Report 6718628-2 (Version None)
Quarter: 2010Q2

REPORT INFORMATION
  Report Type: 
  Country: None (occurrence: None)
  Receive Date: 20100505
  Receipt Date: 20100422
  Transmission Date: 20101027
  Serious: Yes (Death, Congenital Anomaly)
  Sender: FDA-Public Use
  Company Number: 167-20484-09090237

PATIENT
  Sex: Female
  Weight: 1.93 kg

DRUGS (10)
  1. INNOHEP [Suspect]
     Indication: DRUG EXPOSURE DURING PREGNANCY
     Dosage: TRANSPLACENTAL, TRANSPLACENTAL, TRANSPLACENTAL
     Route: 064
     Dates: start: 20010129, end: 20010405
  2. INNOHEP [Suspect]
     Indication: DRUG EXPOSURE DURING PREGNANCY
     Dosage: TRANSPLACENTAL, TRANSPLACENTAL, TRANSPLACENTAL
     Route: 064
     Dates: start: 20010405, end: 20010411
  3. INNOHEP [Suspect]
     Indication: DRUG EXPOSURE DURING PREGNANCY
     Dosage: TRANSPLACENTAL, TRANSPLACENTAL, TRANSPLACENTAL
     Route: 064
     Dates: start: 20010411, end: 20010803
  4. BETAMETHASONE [Concomitant]
  5. SODIUM CITRATE [Concomitant]
  6. RANITIDINE [Concomitant]
  7. METOCLOPRAMIDE            (METOCLOPRAMIDE) [Concomitant]
  8. GAVISCON [Concomitant]
  9. DIAMORPHINE (DIAMORPHINE) [Concomitant]
  10. BUPIVACAINE (BUPIVACAINE) [Concomitant]

REACTIONS (7)
  - CAESAREAN SECTION [None]
  - EBSTEIN'S ANOMALY [None]
  - HYDROPS FOETALIS [None]
  - HYPERTENSION [None]
  - MATERNAL DRUGS AFFECTING FOETUS [None]
  - METABOLIC ACIDOSIS [None]
  - PREMATURE BABY [None]
